FAERS Safety Report 5398455-1 (Version None)
Quarter: 2007Q3

REPORT INFORMATION
  Report Type: 
  Country: None (occurrence: None)
  Receive Date: 20070725
  Receipt Date: 20070713
  Transmission Date: 20080115
  Serious: Yes (Hospitalization)
  Sender: FDA-Public Use
  Company Number: 148865USA

PATIENT
  Age: 51 Year
  Sex: Female
  Weight: 63.05 kg

DRUGS (9)
  1. FLUOROURACIL [Suspect]
     Indication: COLORECTAL CANCER
     Dosage: 3024 MG, EVERY OTHER WEEK; INTRAVENOUS (NOT OTHERWISE SPECIFIED)
     Route: 042
     Dates: start: 20060530, end: 20060921
  2. AG-013, 736 (AG-013, 736) [Suspect]
     Indication: COLORECTAL CANCER
     Dosage: 10 MG (5MG, 2 IN 1 D); ORAL
     Route: 048
     Dates: start: 20060531, end: 20060928
  3. OXALIPLATIN [Suspect]
     Dosage: 142.8 MG EVERY OTHER WEEK, INTRAVENOUS (NOT OTHERWISE SPECIFIED)
     Route: 042
     Dates: start: 20060530, end: 20060918
  4. BEVACIZUMAB [Suspect]
     Dosage: 50.4 MG, EVERY OTHER WEEK; INTRAVENOUS (NOT OTHERWISE SPECIFIED)
     Route: 042
     Dates: start: 20060503, end: 20060918
  5. METFORMIN HCL [Concomitant]
  6. PANTOPRAZOLE SODIUM [Concomitant]
  7. ASPIRIN [Concomitant]
  8. AMLODIPINE [Concomitant]
  9. LISINOPRIL [Concomitant]

REACTIONS (24)
  - ACIDOSIS [None]
  - ATELECTASIS [None]
  - BLOOD ALBUMIN DECREASED [None]
  - BLOOD GLUCOSE INCREASED [None]
  - BLOOD PHOSPHORUS DECREASED [None]
  - COLLAPSE OF LUNG [None]
  - EJECTION FRACTION DECREASED [None]
  - HAEMATOCRIT DECREASED [None]
  - HAEMOGLOBIN DECREASED [None]
  - HEPATIC FAILURE [None]
  - HEPATIC STEATOSIS [None]
  - ISCHAEMIC CARDIOMYOPATHY [None]
  - LEFT VENTRICULAR DYSFUNCTION [None]
  - LUNG CONSOLIDATION [None]
  - LUNG INFILTRATION [None]
  - PLATELET COUNT DECREASED [None]
  - PLEURAL EFFUSION [None]
  - PROTEIN TOTAL DECREASED [None]
  - PULMONARY HILAR ENLARGEMENT [None]
  - PULMONARY MASS [None]
  - PULMONARY OEDEMA [None]
  - RESPIRATORY DISTRESS [None]
  - RESPIRATORY FAILURE [None]
  - URINARY TRACT INFECTION [None]
